FAERS Safety Report 24668045 (Version 1)
Quarter: 2024Q4

REPORT INFORMATION
  Report Type: Spontaneous
  Country: US (occurrence: US)
  Receive Date: 20241127
  Receipt Date: 20241127
  Transmission Date: 20250115
  Serious: Yes (Other)
  Sender: HETERO
  Company Number: US-HETERO-HET2024US04344

PATIENT
  Age: 55 Year
  Sex: Male

DRUGS (6)
  1. HIGH DENSITY POLYETHYLENE [Suspect]
     Active Substance: HIGH DENSITY POLYETHYLENE
     Indication: Bowel preparation
     Dosage: 4 LITER (EVENING)
     Route: 065
  2. HIGH DENSITY POLYETHYLENE [Suspect]
     Active Substance: HIGH DENSITY POLYETHYLENE
     Dosage: 4 LITER (SPLIT-DOSE REGIMEN, EVENING)
     Route: 065
  3. HIGH DENSITY POLYETHYLENE [Suspect]
     Active Substance: HIGH DENSITY POLYETHYLENE
     Dosage: 2 LITER (OVERNIGHT)
     Route: 065
  4. HIGH DENSITY POLYETHYLENE [Suspect]
     Active Substance: HIGH DENSITY POLYETHYLENE
     Dosage: 6 LITER
     Route: 065
  5. HIGH DENSITY POLYETHYLENE [Suspect]
     Active Substance: HIGH DENSITY POLYETHYLENE
     Dosage: 6 LITER (TOTAL OF 6 L PREPARATION WITHOUT CLEAR STOOLS)
  6. HIGH DENSITY POLYETHYLENE [Suspect]
     Active Substance: HIGH DENSITY POLYETHYLENE
     Dosage: 6 LITER (EVENING, AT A RATE OF 1 LITER PER HOUR)

REACTIONS (3)
  - Pulmonary oedema [Recovering/Resolving]
  - Respiratory failure [Recovering/Resolving]
  - Product use issue [Unknown]
